FAERS Safety Report 8206607-8 (Version None)
Quarter: 2012Q1

REPORT INFORMATION
  Report Type: 
  Country: None (occurrence: None)
  Receive Date: 20120313
  Receipt Date: 20120305
  Transmission Date: 20120608
  Serious: Yes (Other)
  Sender: FDA-Public Use
  Company Number: US-ASTRAZENECA-2011SE27332

PATIENT
  Age: 81 Year
  Sex: Male

DRUGS (3)
  1. GLUCOSAMINE AND CHONDROITIN [Concomitant]
  2. CRESTOR [Suspect]
     Indication: BLOOD CHOLESTEROL ABNORMAL
     Route: 048
     Dates: start: 20090101
  3. COUMADIN [Concomitant]

REACTIONS (4)
  - DERMATITIS [None]
  - CELLULITIS [None]
  - MALAISE [None]
  - ATRIOVENTRICULAR BLOCK COMPLETE [None]
